FAERS Safety Report 9207878 (Version 2)
Quarter: 2013Q2

REPORT INFORMATION
  Report Type: Spontaneous
  Country: JP (occurrence: JP)
  Receive Date: 20130403
  Receipt Date: 20130410
  Transmission Date: 20140414
  Serious: Yes (Other)
  Sender: FDA-Public Use
  Company Number: JP-GLAXOSMITHKLINE-B0879315A

PATIENT
  Sex: Male

DRUGS (4)
  1. AVOLVE [Suspect]
     Indication: PRODUCT USED FOR UNKNOWN INDICATION
     Route: 048
     Dates: start: 20110531
  2. HARNAL [Concomitant]
     Route: 048
  3. BUP-4 [Concomitant]
     Route: 048
  4. CELECOX [Concomitant]
     Route: 048

REACTIONS (1)
  - Vasculitis [Not Recovered/Not Resolved]
